FAERS Safety Report 16264435 (Version 3)
Quarter: 2019Q2

REPORT INFORMATION
  Report Type: Spontaneous
  Country: US (occurrence: US)
  Receive Date: 20190502
  Receipt Date: 20190627
  Transmission Date: 20190711
  Serious: No
  Sender: FDA-Public Use
  Company Number: US-PFIZER INC-2019091784

PATIENT
  Age: 29 Year
  Sex: Male
  Weight: 82.55 kg

DRUGS (7)
  1. DILANTIN [Suspect]
     Active Substance: PHENYTOIN
     Indication: SEIZURE
     Dosage: 300 MG, DAILY [100 MG CAPSULES, 30 MG CAPSULES. TAKES 3 100MG AND 2 30MG CAPSULES EVERY NIGHT
     Route: 048
     Dates: start: 2014
  2. DILANTIN [Suspect]
     Active Substance: PHENYTOIN
     Dosage: 360 MG, DAILY (3-100MG CAPSULES AND 2-30MG CAPSULES)
     Route: 048
  3. SERTRALINE HYDROCHLORIDE. [Concomitant]
     Active Substance: SERTRALINE HYDROCHLORIDE
     Indication: AFFECTIVE DISORDER
     Dosage: UNK
  4. DILANTIN [Suspect]
     Active Substance: PHENYTOIN
     Dosage: 400 MG, DAILY
  5. DILANTIN [Suspect]
     Active Substance: PHENYTOIN
     Dosage: 360 MG, UNK ((HE DIDN^T GET 100 ONLY GOT 30; GONNA TAKE 12 PILLS)
  6. DILANTIN [Suspect]
     Active Substance: PHENYTOIN
     Indication: EPILEPSY
     Dosage: 360 MG, DAILY [100 MG CAPSULES, 30 MG CAPSULES. TAKES 3 100MG AND 2 30MG CAPSULES EVERY NIGHT
     Route: 048
     Dates: start: 2014
  7. ZOLOFT [Concomitant]
     Active Substance: SERTRALINE HYDROCHLORIDE
     Indication: SEIZURE PROPHYLAXIS
     Dosage: 100 MG, 2X/DAY [100 MG TABLET, 1 IN THE MORNING AND 1 AT NIGHT BY MOUTH]
     Route: 048

REACTIONS (2)
  - Anger [Unknown]
  - Toxicity to various agents [Recovered/Resolved]
